FAERS Safety Report 6285371-6 (Version None)
Quarter: 2009Q3

REPORT INFORMATION
  Report Type: 
  Country: None (occurrence: None)
  Receive Date: 20090723
  Receipt Date: 20090629
  Transmission Date: 20100115
  Serious: Yes (Hospitalization)
  Sender: FDA-Public Use
  Company Number: 310001L09TUR

PATIENT
  Age: 38 Year
  Sex: Female

DRUGS (4)
  1. GONAL-F [Suspect]
     Indication: IN VITRO FERTILISATION
     Dosage: 225 IU, 1 IN 1 DAYS,
  2. CETROTIDE [Suspect]
     Indication: IN VITRO FERTILISATION
     Dosage: 0.25 MG, 1 IN 1 DAYS
  3. PREGNYL [Concomitant]
  4. CRINONE [Concomitant]

REACTIONS (5)
  - CAESAREAN SECTION [None]
  - DRUG EXPOSURE BEFORE PREGNANCY [None]
  - HETEROTOPIC PREGNANCY [None]
  - PREGNANCY [None]
  - RUPTURED ECTOPIC PREGNANCY [None]
